FAERS Safety Report 6716347-X (Version None)
Quarter: 2010Q2

REPORT INFORMATION
  Report Type: 
  Country: None (occurrence: None)
  Receive Date: 20100507
  Receipt Date: 20100427
  Transmission Date: 20101027
  Serious: Yes (Other)
  Sender: FDA-Public Use
  Company Number: JP-JNJFOC-20100500828

PATIENT
  Sex: Male

DRUGS (7)
  1. TOPIRAMATE [Suspect]
     Indication: EPILEPSY
     Route: 048
  2. TOPIRAMATE [Suspect]
     Route: 048
  3. MYSTAN [Concomitant]
     Route: 048
  4. GABAPEN [Concomitant]
     Route: 048
  5. CARBAMAZEPINE [Concomitant]
     Route: 048
  6. DIAZEPAM [Concomitant]
  7. VEEN-3G [Concomitant]

REACTIONS (4)
  - EXCORIATION [None]
  - FACE INJURY [None]
  - SOMNOLENCE [None]
  - STATUS EPILEPTICUS [None]
